FAERS Safety Report 16119038 (Version 1)
Quarter: 2019Q1

REPORT INFORMATION
  Report Type: Spontaneous
  Country: US (occurrence: US)
  Receive Date: 20190326
  Receipt Date: 20190326
  Transmission Date: 20190418
  Serious: Yes (Hospitalization)
  Sender: FDA-Public Use
  Company Number: US-PFIZER INC-2018435427

PATIENT
  Age: 51 Year
  Sex: Female
  Weight: 54.43 kg

DRUGS (1)
  1. PREPARATION H CREAM MAX STRENGTH [Suspect]
     Active Substance: GLYCERIN\PETROLATUM\PHENYLEPHRINE HYDROCHLORIDE\PRAMOXINE HYDROCHLORIDE
     Indication: SKIN WRINKLING
     Dosage: UNK, DAILY (APPLIED ONCE UNDER NEATH EYES OVER NIGHT)
     Route: 061
     Dates: start: 20181019, end: 201810

REACTIONS (8)
  - Burning sensation [Recovered/Resolved]
  - Eye swelling [Recovered/Resolved]
  - Facial pain [Recovered/Resolved]
  - Intentional product misuse [Recovered/Resolved]
  - Periorbital oedema [Recovered/Resolved]
  - Infection [Recovered/Resolved]
  - Eye irritation [Recovered/Resolved]
  - Swelling face [Recovered/Resolved]

NARRATIVE: CASE EVENT DATE: 20181019
